FAERS Safety Report 6426241-X (Version None)
Quarter: 2009Q4

REPORT INFORMATION
  Report Type: 
  Country: None (occurrence: None)
  Receive Date: 20091104
  Receipt Date: 20091020
  Transmission Date: 20100525
  Serious: Yes (Hospitalization)
  Sender: FDA-Public Use
  Company Number: AU-ROCHE-576498

PATIENT
  Sex: Female
  Weight: 84.3 kg

DRUGS (6)
  1. CAPECITABINE [Suspect]
     Indication: COLON CANCER
     Dosage: DATE OF MOST RECENT DOSE: 30 JUNE 2008
     Route: 048
     Dates: start: 20080610, end: 20080630
  2. CAPECITABINE [Suspect]
     Route: 048
     Dates: start: 20080721
  3. ACTRAPID [Concomitant]
     Route: 058
     Dates: start: 20010101
  4. CITALOPRAM HYDROBROMIDE [Concomitant]
     Indication: DEPRESSION
     Route: 048
     Dates: start: 20010101
  5. XANAX [Concomitant]
     Indication: ANXIETY
     Route: 048
     Dates: start: 20010101
  6. FAMVIR [Concomitant]
     Route: 048
     Dates: start: 20010101

REACTIONS (1)
  - HAEMATOMA [None]
